FAERS Safety Report 6491270-7 (Version None)
Quarter: 2009Q4

REPORT INFORMATION
  Report Type: 
  Country: None (occurrence: None)
  Receive Date: 20091211
  Receipt Date: 20091203
  Transmission Date: 20100525
  Serious: Yes (Other)
  Sender: FDA-Public Use
  Company Number: PHHY2009CA06213

PATIENT
  Sex: Female

DRUGS (1)
  1. SANDOSTATIN LAR [Suspect]
     Indication: ACROMEGALY
     Dosage: 30 MG, EVERY 4 WEEKS
     Route: 030
     Dates: start: 20060526

REACTIONS (14)
  - BALANCE DISORDER [None]
  - BLOOD PRESSURE INCREASED [None]
  - CEREBRAL PALSY [None]
  - CONTUSION [None]
  - DIARRHOEA [None]
  - DYSSTASIA [None]
  - EPISTAXIS [None]
  - FALL [None]
  - INSOMNIA [None]
  - LOSS OF CONSCIOUSNESS [None]
  - MALAISE [None]
  - MOBILITY DECREASED [None]
  - MYALGIA [None]
  - VOMITING [None]
